FAERS Safety Report 12565835 (Version 2)
Quarter: 2016Q3

REPORT INFORMATION
  Report Type: Report from Study
  Country: DE (occurrence: DE)
  Receive Date: 20160718
  Receipt Date: 20160817
  Transmission Date: 20161109
  Serious: Yes (Other)
  Sender: FDA-Public Use
  Company Number: PHHY2016DE097533

PATIENT
  Sex: Female
  Weight: 75 kg

DRUGS (6)
  1. PREDNISOLONE. [Concomitant]
     Active Substance: PREDNISOLONE
     Indication: WHEEZING
  2. PREDNISOLONE. [Concomitant]
     Active Substance: PREDNISOLONE
     Indication: EXERCISE TOLERANCE DECREASED
     Dosage: 2 DF, PRN (ON SCHEDULE 5 DAYS 2 TABLETS AS NEEDED PER DAY)
     Route: 065
     Dates: start: 20140428
  3. PREDNISOLONE. [Concomitant]
     Active Substance: PREDNISOLONE
     Indication: PROLONGED EXPIRATION
  4. QVA149 [Suspect]
     Active Substance: INVESTIGATIONAL PRODUCT
     Indication: CHRONIC OBSTRUCTIVE PULMONARY DISEASE
     Dosage: 1 DF, QD (110 ?G/50 ?G (85/43 ?G))
     Route: 055
     Dates: start: 20140203
  5. PREDNISOLONE. [Concomitant]
     Active Substance: PREDNISOLONE
     Indication: GRUNTING
  6. SALBUTAMOL CT [Concomitant]
     Indication: CHRONIC OBSTRUCTIVE PULMONARY DISEASE
     Dosage: 1 DF, PRN (1X1 - 2 AS NEEDED PER DAY)
     Route: 065
     Dates: start: 20140428

REACTIONS (5)
  - Wheezing [Recovering/Resolving]
  - Prolonged expiration [Recovering/Resolving]
  - Forced expiratory volume decreased [Unknown]
  - Exercise tolerance decreased [Not Recovered/Not Resolved]
  - Grunting [Recovering/Resolving]

NARRATIVE: CASE EVENT DATE: 20140428
